FAERS Safety Report 4830927-8 (Version None)
Quarter: 2005Q4

REPORT INFORMATION
  Report Type: 
  Country: None (occurrence: None)
  Receive Date: 20051114
  Receipt Date: 20050809
  Transmission Date: 20060501
  Serious: Yes (Life-Threatening, Hospitalization)
  Sender: FDA-Public Use
  Company Number: COT_0244_2005

PATIENT
  Age: 56 Year
  Sex: Male

DRUGS (6)
  1. ILOPROST [Suspect]
     Indication: PERIPHERAL ISCHAEMIA
     Dosage: 8 MCG Q1HR IV
     Route: 042
  2. GLIBENCLAMIDE [Concomitant]
  3. METFORMINE [Concomitant]
  4. LISINOPRIL [Concomitant]
  5. FENOFIBRATE [Concomitant]
  6. ACENOCOUMAROL [Concomitant]

REACTIONS (3)
  - MYOCARDIAL INFARCTION [None]
  - RHABDOMYOLYSIS [None]
  - SHOCK [None]
